FAERS Safety Report 6811553-8 (Version None)
Quarter: 2010Q3

REPORT INFORMATION
  Report Type: 
  Country: None (occurrence: None)
  Receive Date: 20100701
  Receipt Date: 20100622
  Transmission Date: 20110219
  Serious: Yes (Hospitalization)
  Sender: FDA-Public Use
  Company Number: US-BIOGENIDEC-2010BI018262

PATIENT
  Age: 52 Year
  Sex: Female
  Weight: 104 kg

DRUGS (1)
  1. TYSABRI [Suspect]
     Indication: MULTIPLE SCLEROSIS
     Route: 042
     Dates: start: 20080122, end: 20100324

REACTIONS (3)
  - ANXIETY [None]
  - DECUBITUS ULCER [None]
  - OSTEOMYELITIS [None]
